FAERS Safety Report 11088902 (Version 1)
Quarter: 2015Q2

REPORT INFORMATION
  Report Type: Spontaneous
  Country: US (occurrence: US)
  Receive Date: 20150504
  Receipt Date: 20150504
  Transmission Date: 20150821
  Serious: No
  Sender: FDA-Public Use
  Company Number: US-BIOMARINAP-US-2014-104748

PATIENT
  Sex: Female

DRUGS (4)
  1. ACETAMINOPHEN. [Concomitant]
     Active Substance: ACETAMINOPHEN
     Indication: PREMEDICATION
  2. ALDURAZYME [Suspect]
     Active Substance: LARONIDASE
     Indication: MUCOPOLYSACCHARIDOSIS I
     Dosage: 11.6 MG, QW
     Route: 042
     Dates: start: 20140404
  3. BENADRYL [Concomitant]
     Active Substance: DIPHENHYDRAMINE HYDROCHLORIDE
     Indication: PREMEDICATION
  4. ALDURAZYME [Suspect]
     Active Substance: LARONIDASE
     Dosage: 11.6 MG, QW
     Route: 042
     Dates: start: 200712

REACTIONS (1)
  - Headache [Unknown]

NARRATIVE: CASE EVENT DATE: 2014
